FAERS Safety Report 13468403 (Version 1)
Quarter: 2017Q2

REPORT INFORMATION
  Report Type: Spontaneous
  Country: US (occurrence: US)
  Receive Date: 20170421
  Receipt Date: 20170421
  Transmission Date: 20170830
  Serious: Yes (Death, Other)
  Sender: FDA-Public Use
  Company Number: US-MUNDIPHARMA DS AND PHARMACOVIGILANCE-USA-2017-0137476

PATIENT
  Age: 18 Year
  Sex: Male

DRUGS (5)
  1. OXYCONTIN [Suspect]
     Active Substance: OXYCODONE HYDROCHLORIDE
     Indication: DRUG USE DISORDER
     Route: 048
  2. MARIJUANA [Suspect]
     Active Substance: CANNABIS SATIVA SUBSP. INDICA TOP
     Indication: DRUG USE DISORDER
     Route: 055
  3. ALCOHOL. [Suspect]
     Active Substance: ALCOHOL
     Indication: DRUG USE DISORDER
     Route: 048
  4. FENTANYL. [Suspect]
     Active Substance: FENTANYL
     Indication: DRUG USE DISORDER
     Route: 065
  5. COCAINE [Suspect]
     Active Substance: COCAINE
     Indication: DRUG USE DISORDER
     Route: 065

REACTIONS (3)
  - Unresponsive to stimuli [Unknown]
  - Substance use disorder [Unknown]
  - Cardiac arrest [Fatal]

NARRATIVE: CASE EVENT DATE: 20170113
